FAERS Safety Report 11376857 (Version 2)
Quarter: 2018Q4

REPORT INFORMATION
  Report Type: Spontaneous
  Country: CA (occurrence: CA)
  Receive Date: 20150813
  Receipt Date: 20181012
  Transmission Date: 20190204
  Serious: Yes (Other)
  Sender: FDA-Public Use
  Company Number: CA-009507513-1508CAN004997

PATIENT
  Age: 60 Year
  Sex: Female
  Weight: 82 kg

DRUGS (12)
  1. HUMALOG [Concomitant]
     Active Substance: INSULIN LISPRO
     Dosage: UNK, TID
  2. LANTUS [Concomitant]
     Active Substance: INSULIN GLARGINE
     Dosage: UNK, QD
  3. ROSUVASTATIN. [Concomitant]
     Active Substance: ROSUVASTATIN
     Dosage: 10 MG, AT THE TIME OF SLEEP (HS)
  4. JANUVIA [Suspect]
     Active Substance: SITAGLIPTIN PHOSPHATE
     Indication: TYPE 2 DIABETES MELLITUS
     Dosage: 1 EVERY 1 DAY
     Route: 048
     Dates: start: 20140917, end: 20141022
  5. COVERSYL (PERINDOPRIL ARGININE) [Concomitant]
     Active Substance: PERINDOPRIL ARGININE
     Dosage: 8 MG, QD
  6. INDAPAMIDE. [Concomitant]
     Active Substance: INDAPAMIDE
     Dosage: 2.5 MG, QD
  7. ASAPHEN EC [Concomitant]
     Dosage: 80 MG, QD
     Dates: end: 20141022
  8. DIABETA [Concomitant]
     Active Substance: GLYBURIDE
     Dosage: 10 MG, BID
     Dates: end: 20141022
  9. GLUCOPHAGE [Concomitant]
     Active Substance: METFORMIN HYDROCHLORIDE
     Dosage: 850 MG, BID
  10. SPIRIVA [Concomitant]
     Active Substance: TIOTROPIUM BROMIDE MONOHYDRATE
     Dosage: 18 MG, QD
  11. SYNTHROID [Concomitant]
     Active Substance: LEVOTHYROXINE SODIUM
     Dosage: 0.1 MG, QD
  12. TYLENOL PM EXTRA STRENGTH [Concomitant]
     Active Substance: ACETAMINOPHEN\DIPHENHYDRAMINE HYDROCHLORIDE
     Dosage: UNK

REACTIONS (6)
  - Pancreatitis [Recovered/Resolved]
  - Lipase increased [Unknown]
  - Lithiasis [Recovered/Resolved]
  - Pancreatic duct obstruction [Recovered/Resolved]
  - Abdominal pain [Unknown]
  - Pain [Unknown]

NARRATIVE: CASE EVENT DATE: 20141014
